FAERS Safety Report 5993223-1 (Version None)
Quarter: 2008Q4

REPORT INFORMATION
  Report Type: 
  Country: None (occurrence: None)
  Receive Date: 20081210
  Receipt Date: 20081210
  Transmission Date: 20090506
  Serious: No
  Sender: FDA-Public Use
  Company Number: None

PATIENT

DRUGS (1)
  1. CYMBALTA [Suspect]
     Dosage: 60 MG ONCE A DAY
     Dates: start: 20081205, end: 20081207

REACTIONS (1)
  - HALLUCINATION [None]
